FAERS Safety Report 9923793 (Version 2)
Quarter: 2014Q4

REPORT INFORMATION
  Report Type: Report from Study
  Country: US (occurrence: US)
  Receive Date: 20140225
  Receipt Date: 20141027
  Transmission Date: 20150529
  Serious: No
  Sender: FDA-Public Use
  Company Number: US-AMGEN-USASP2014003392

PATIENT
  Age: 65 Year
  Sex: Female

DRUGS (3)
  1. PREDNISONE. [Concomitant]
     Active Substance: PREDNISONE
     Dosage: 20 MG, DAILY
     Route: 048
     Dates: start: 20141016
  2. ENBREL [Suspect]
     Active Substance: ETANERCEPT
     Indication: RHEUMATOID ARTHRITIS
     Dosage: 50 MG, QWK
     Route: 065
     Dates: start: 20140107
  3. METHOTREXATE [Concomitant]
     Active Substance: METHOTREXATE
     Dosage: UNK

REACTIONS (10)
  - Musculoskeletal pain [Not Recovered/Not Resolved]
  - Local swelling [Not Recovered/Not Resolved]
  - Injection site pain [Not Recovered/Not Resolved]
  - Sleep disorder due to a general medical condition [Recovered/Resolved]
  - Arthralgia [Not Recovered/Not Resolved]
  - Bone pain [Not Recovered/Not Resolved]
  - Influenza like illness [Not Recovered/Not Resolved]
  - Pain in extremity [Not Recovered/Not Resolved]
  - Pain [Not Recovered/Not Resolved]
  - Malaise [Not Recovered/Not Resolved]

NARRATIVE: CASE EVENT DATE: 20140107
